FAERS Safety Report 9726804 (Version 2)
Quarter: 2013Q4

REPORT INFORMATION
  Report Type: Spontaneous
  Country: DE (occurrence: DE)
  Receive Date: 20131203
  Receipt Date: 20131203
  Transmission Date: 20140711
  Serious: Yes (Other)
  Sender: FDA-Public Use
  Company Number: PHHY2013DE131775

PATIENT
  Sex: Male
  Weight: 75 kg

DRUGS (4)
  1. GILENYA [Suspect]
     Indication: MULTIPLE SCLEROSIS
     Dosage: 0.5 MG, QD
     Route: 048
     Dates: start: 20131021
  2. AMANTADINE [Suspect]
     Indication: FATIGUE
     Dosage: 200 MG, QD
     Dates: start: 201307, end: 20131120
  3. ELONTRIL [Suspect]
     Indication: FATIGUE
     Dosage: 150 MG, QD
     Dates: start: 20131112, end: 20131120
  4. VIGANTOLETTEN [Concomitant]
     Dosage: 0.025 MG, UNK
     Dates: start: 201307

REACTIONS (2)
  - Weight decreased [Not Recovered/Not Resolved]
  - Eye pain [Recovered/Resolved]
